FAERS Safety Report 11710022 (Version 1)
Quarter: 2015Q4

REPORT INFORMATION
  Report Type: Spontaneous
  Country: US (occurrence: US)
  Receive Date: 20151104
  Receipt Date: 20151104
  Transmission Date: 20160304
  Serious: No
  Sender: FDA-Public Use
  Company Number: US-ELI_LILLY_AND_COMPANY-US201104000268

PATIENT
  Age: 58 Year

DRUGS (3)
  1. BONIVA [Concomitant]
     Active Substance: IBANDRONATE SODIUM
  2. ACTONEL [Concomitant]
     Active Substance: RISEDRONATE SODIUM
  3. FORTEO [Suspect]
     Active Substance: TERIPARATIDE
     Indication: OSTEOPOROSIS
     Dosage: 20 UG, QD
     Dates: start: 20110325

REACTIONS (6)
  - Limb discomfort [Unknown]
  - Heart rate increased [Unknown]
  - Fear [Unknown]
  - Pain [Unknown]
  - Back pain [Unknown]
  - Confusional state [Unknown]
